FAERS Safety Report 8210329-7 (Version None)
Quarter: 2012Q1

REPORT INFORMATION
  Report Type: 
  Country: None (occurrence: None)
  Receive Date: 20120314
  Receipt Date: 20120213
  Transmission Date: 20120608
  Serious: Yes (Other)
  Sender: FDA-Public Use
  Company Number: US-ROCHE-1047571

PATIENT
  Sex: Male

DRUGS (2)
  1. TORISEL [Suspect]
     Indication: RENAL CELL CARCINOMA
  2. AVASTIN [Suspect]
     Indication: RENAL CELL CARCINOMA

REACTIONS (2)
  - THERAPEUTIC RESPONSE DECREASED [None]
  - RENAL CELL CARCINOMA [None]
